FAERS Safety Report 7596826-6 (Version None)
Quarter: 2011Q3

REPORT INFORMATION
  Report Type: 
  Country: None (occurrence: None)
  Receive Date: 20110708
  Receipt Date: 20110624
  Transmission Date: 20111222
  Serious: Yes (Hospitalization)
  Sender: FDA-Public Use
  Company Number: US-MYLANLABS-2011S1013449

PATIENT
  Age: 80 Year
  Sex: Female

DRUGS (4)
  1. HYDROCHLOROTHIAZIDE [Suspect]
     Route: 065
  2. LISINOPRIL [Concomitant]
     Route: 065
  3. PROPYLTHIOURACIL [Concomitant]
     Route: 065
  4. BISACODYL [Suspect]
     Indication: COLONOSCOPY
     Route: 065

REACTIONS (2)
  - HYPONATRAEMIA [None]
  - BRAIN OEDEMA [None]
